FAERS Safety Report 11100835 (Version 1)
Quarter: 2015Q2

REPORT INFORMATION
  Report Type: Spontaneous
  Country: US (occurrence: US)
  Receive Date: 20150508
  Receipt Date: 20150508
  Transmission Date: 20150821
  Serious: No
  Sender: FDA-Public Use
  Company Number: US-GLAXOSMITHKLINE-US2015028368

PATIENT
  Age: 69 Year
  Sex: Female

DRUGS (1)
  1. ALLI [Suspect]
     Active Substance: ORLISTAT
     Indication: CONSTIPATION
     Dosage: UNK

REACTIONS (3)
  - Condition aggravated [Not Recovered/Not Resolved]
  - Drug administration error [Not Recovered/Not Resolved]
  - Constipation [Not Recovered/Not Resolved]
